FAERS Safety Report 4431050-7 (Version None)
Quarter: 2004Q3

REPORT INFORMATION
  Report Type: 
  Country: None (occurrence: None)
  Receive Date: 20040824
  Receipt Date: 20040723
  Transmission Date: 20050211
  Serious: No
  Sender: FDA-Public Use
  Company Number: US-BRISTOL-MYERS SQUIBB COMPANY-12650461

PATIENT
  Sex: Female

DRUGS (1)
  1. MUCOMYST [Suspect]
     Route: 061

REACTIONS (1)
  - ACCIDENTAL EXPOSURE [None]
